FAERS Safety Report 5537445-2 (Version None)
Quarter: 2007Q4

REPORT INFORMATION
  Report Type: 
  Country: None (occurrence: None)
  Receive Date: 20071207
  Receipt Date: 20071112
  Transmission Date: 20080405
  Serious: Yes (Other)
  Sender: FDA-Public Use
  Company Number: TR-ELI_LILLY_AND_COMPANY-TR200712000219

PATIENT
  Sex: Female
  Weight: 100 kg

DRUGS (4)
  1. HUMULIN N [Suspect]
     Indication: TYPE 2 DIABETES MELLITUS
     Dosage: 26 U, EACH MORNING
     Route: 058
     Dates: start: 20070918
  2. HUMULIN N [Suspect]
     Dosage: 20 U, EACH EVENING
     Route: 058
     Dates: start: 20070918
  3. HUMULIN R [Suspect]
     Indication: TYPE 2 DIABETES MELLITUS
     Dosage: 20 U, AT NOON
     Route: 058
     Dates: start: 20070918
  4. ANTIHYPERTENSIVES [Concomitant]
     Indication: HYPERTENSION
     Dosage: UNK, UNKNOWN

REACTIONS (3)
  - INCREASED APPETITE [None]
  - NAIL BED INJURY [None]
  - WEIGHT INCREASED [None]
